FAERS Safety Report 4267047-X (Version None)
Quarter: 2004Q1

REPORT INFORMATION
  Report Type: 
  Country: None (occurrence: None)
  Receive Date: 20040108
  Receipt Date: 20040105
  Transmission Date: 20041129
  Serious: Yes (Other)
  Sender: FDA-Public Use
  Company Number: FR-BRISTOL-MYERS SQUIBB COMPANY-12469821

PATIENT
  Age: 53 Year
  Sex: Male

DRUGS (3)
  1. APROVEL TABS 150 MG [Suspect]
     Route: 048
     Dates: start: 20030701, end: 20030801
  2. COAPROVEL TABS 150MG/12.5MG [Suspect]
     Route: 048
     Dates: start: 20030801, end: 20031101
  3. STILNOX [Concomitant]

REACTIONS (1)
  - GLOSSODYNIA [None]
